FAERS Safety Report 10754808 (Version 1)
Quarter: 2015Q1

REPORT INFORMATION
  Report Type: Spontaneous
  Country: US (occurrence: None)
  Receive Date: 20150130
  Receipt Date: 20150130
  Transmission Date: 20150721
  Serious: Yes (Hospitalization)
  Sender: FDA-Public Use
  Company Number: None

PATIENT
  Age: 67 Year
  Sex: Male
  Weight: 98.7 kg

DRUGS (1)
  1. MORPHINE [Suspect]
     Active Substance: MORPHINE
     Indication: PAIN
     Route: 048
     Dates: start: 20140806, end: 20140807

REACTIONS (5)
  - Lethargy [None]
  - Acute myocardial infarction [None]
  - Dyspnoea [None]
  - Mental status changes [None]
  - Hyperhidrosis [None]

NARRATIVE: CASE EVENT DATE: 20140807
